FAERS Safety Report 7560142-9 (Version None)
Quarter: 2011Q2

REPORT INFORMATION
  Report Type: 
  Country: None (occurrence: None)
  Receive Date: 20110621
  Receipt Date: 20110620
  Transmission Date: 20111010
  Serious: Yes (Hospitalization)
  Sender: FDA-Public Use
  Company Number: A0899237A

PATIENT
  Age: 38 Year
  Sex: Female

DRUGS (1)
  1. AVANDIA [Suspect]
     Indication: DIABETES MELLITUS
     Dosage: 8MG PER DAY
     Route: 048

REACTIONS (5)
  - MYOCARDIAL INFARCTION [None]
  - HEART RATE INCREASED [None]
  - CHEST PAIN [None]
  - HEART RATE IRREGULAR [None]
  - DYSPNOEA [None]
